FAERS Safety Report 18980374 (Version 3)
Quarter: 2021Q4

REPORT INFORMATION
  Report Type: Spontaneous
  Country: US (occurrence: US)
  Receive Date: 20210308
  Receipt Date: 20211220
  Transmission Date: 20220303
  Serious: No
  Sender: FDA-Public Use
  Company Number: US-SA-SAC20210304001350

PATIENT
  Sex: Female
  Weight: 76.2 kg

DRUGS (2)
  1. CEREZYME [Suspect]
     Active Substance: IMIGLUCERASE
     Indication: Gaucher^s disease
     Dosage: 4800 IU, QOW
     Route: 042
     Dates: start: 20161214
  2. CEREZYME [Suspect]
     Active Substance: IMIGLUCERASE
     Dosage: 4400 U, QOW
     Route: 042
     Dates: start: 202110

REACTIONS (3)
  - Weight decreased [Unknown]
  - Weight increased [Unknown]
  - Product preparation error [Unknown]
